FAERS Safety Report 5316637-1 (Version None)
Quarter: 2007Q2

REPORT INFORMATION
  Report Type: 
  Country: None (occurrence: None)
  Receive Date: 20070504
  Receipt Date: 20070427
  Transmission Date: 20071010
  Serious: Yes (Death)
  Sender: FDA-Public Use
  Company Number: AT-BRISTOL-MYERS SQUIBB COMPANY-13764873

PATIENT
  Age: 82 Year
  Sex: Female
  Weight: 115 kg

DRUGS (4)
  1. MAXIPIME [Suspect]
     Indication: RESPIRATORY TRACT INFECTION
     Dates: start: 20040410, end: 20040420
  2. MAXIPIME [Suspect]
     Indication: ABDOMINAL INFECTION
     Dates: start: 20040410, end: 20040420
  3. ZYVOX [Suspect]
     Indication: ABDOMINAL INFECTION
     Dates: start: 20040410, end: 20040420
  4. ZYVOX [Suspect]
     Indication: RESPIRATORY TRACT INFECTION
     Dates: start: 20040410, end: 20040420

REACTIONS (1)
  - MULTIMORBIDITY [None]
